FAERS Safety Report 15223283 (Version 2)
Quarter: 2018Q3

REPORT INFORMATION
  Report Type: Spontaneous
  Country: US (occurrence: US)
  Receive Date: 20180731
  Receipt Date: 20180802
  Transmission Date: 20181010
  Serious: Yes (Other)
  Sender: FDA-Public Use
  Company Number: US-ENDO PHARMACEUTICALS INC-2018-040370

PATIENT
  Age: 54 Year
  Sex: Male
  Weight: 90.7 kg

DRUGS (3)
  1. SILVER SULFADIAZINE. [Concomitant]
     Active Substance: SILVER SULFADIAZINE
     Indication: PRODUCT USED FOR UNKNOWN INDICATION
     Dosage: DISPENSE 50 GRAMS, DAILY
     Route: 061
  2. XIAFLEX [Suspect]
     Active Substance: COLLAGENASE CLOSTRIDIUM HISTOLYTICUM
     Dosage: UNK MG, CYCLE 1, INJECTION 1
     Route: 026
     Dates: start: 20180611
  3. XIAFLEX [Suspect]
     Active Substance: COLLAGENASE CLOSTRIDIUM HISTOLYTICUM
     Indication: PEYRONIE^S DISEASE
     Dosage: UNK MG, CYCLE 1, INJECTION 2
     Route: 026
     Dates: start: 20180614

REACTIONS (3)
  - Corpora cavernosa surgery [Recovered/Resolved]
  - Fracture of penis [Unknown]
  - Nausea [Unknown]

NARRATIVE: CASE EVENT DATE: 201807
